FAERS Safety Report 5975737-3 (Version None)
Quarter: 2008Q4

REPORT INFORMATION
  Report Type: 
  Country: None (occurrence: None)
  Receive Date: 20081124
  Receipt Date: 20071010
  Transmission Date: 20090506
  Serious: Yes (Other)
  Sender: FDA-Public Use
  Company Number: US-WYE-H00647007

PATIENT

DRUGS (3)
  1. ZOSYN [Suspect]
     Indication: ABDOMINAL INFECTION
     Dosage: INTRAVENOUS
     Route: 042
  2. ZOSYN [Suspect]
     Indication: PNEUMONIA
     Dosage: INTRAVENOUS
     Route: 042
  3. ZOSYN [Suspect]
     Indication: SKIN INFECTION
     Dosage: INTRAVENOUS
     Route: 042

REACTIONS (1)
  - CLOSTRIDIAL INFECTION [None]
